FAERS Safety Report 17961278 (Version 1)
Quarter: 2020Q2

REPORT INFORMATION
  Report Type: Report from Study
  Country: None (occurrence: US)
  Receive Date: 20200630
  Receipt Date: 20200630
  Transmission Date: 20200714
  Serious: No
  Sender: FDA-Public Use
  Company Number: US-BIOVITRUM-2019US4161

PATIENT
  Sex: Female

DRUGS (1)
  1. KINERET [Suspect]
     Active Substance: ANAKINRA
     Indication: RHEUMATOID ARTHRITIS
     Route: 058
     Dates: start: 20191022

REACTIONS (13)
  - Fall [Unknown]
  - Pyrexia [Unknown]
  - Hypoaesthesia [Unknown]
  - Headache [Unknown]
  - Injection site mass [Unknown]
  - Injection site pain [Unknown]
  - Tension headache [Unknown]
  - Therapeutic product effect incomplete [Unknown]
  - Inflammation [Not Recovered/Not Resolved]
  - Muscle rigidity [Not Recovered/Not Resolved]
  - Rash macular [Unknown]
  - Pain [Recovering/Resolving]
  - Injection site rash [Unknown]
